FAERS Safety Report 6359637-5 (Version None)
Quarter: 2009Q3

REPORT INFORMATION
  Report Type: 
  Country: None (occurrence: None)
  Receive Date: 20090917
  Receipt Date: 20090908
  Transmission Date: 20100115
  Serious: No
  Sender: FDA-Public Use
  Company Number: NL-ASTRAZENECA-2009SE10241

PATIENT
  Age: 22807 Day
  Sex: Male
  Weight: 124 kg

DRUGS (1)
  1. CRESTOR [Suspect]
     Indication: HYPERCHOLESTEROLAEMIA
     Route: 048
     Dates: start: 20030101, end: 20080604

REACTIONS (1)
  - EXERCISE TOLERANCE DECREASED [None]
